FAERS Safety Report 21539254 (Version 1)
Quarter: 2022Q4

REPORT INFORMATION
  Report Type: Spontaneous
  Country: US (occurrence: US)
  Receive Date: 20221102
  Receipt Date: 20221102
  Transmission Date: 20230113
  Serious: Yes (Hospitalization, Other)
  Sender: FDA-Public Use
  Company Number: US-GLENMARK PHARMACEUTICALS-2022GMK076130

PATIENT
  Age: 45 Year
  Sex: Female

DRUGS (8)
  1. TOPIRAMATE [Suspect]
     Active Substance: TOPIRAMATE
     Indication: Somnambulism
     Dosage: 25 MILLIGRAM, HS
     Route: 065
  2. TOPIRAMATE [Suspect]
     Active Substance: TOPIRAMATE
     Indication: Sleep-related eating disorder
     Dosage: 100 MILLIGRAM, HS (SLOWLY TITRATED UP TO 100 MG)
     Route: 065
  3. TOPIRAMATE [Suspect]
     Active Substance: TOPIRAMATE
     Indication: Tobacco user
  4. GABAPENTIN [Concomitant]
     Active Substance: GABAPENTIN
     Indication: Pain
     Dosage: 600 MILLIGRAM, AM
     Route: 065
     Dates: start: 2010
  5. GABAPENTIN [Concomitant]
     Active Substance: GABAPENTIN
     Dosage: 1200 MILLIGRAM, QD (1200 MILLIGRAM, IN THE EVENING)
     Route: 065
     Dates: start: 2010
  6. BUPROPION [Concomitant]
     Active Substance: BUPROPION
     Indication: Tobacco user
     Dosage: 100 MILLIGRAM, TID
     Route: 065
     Dates: start: 2008, end: 202010
  7. BUPROPION [Concomitant]
     Active Substance: BUPROPION
     Dosage: 450MG XL (450MG XL IN THE MORNING)
     Route: 065
     Dates: start: 202010
  8. BUPRENORPHINE [Concomitant]
     Active Substance: BUPRENORPHINE
     Indication: Product used for unknown indication
     Dosage: 8MG - 2-2.5 PILLS A DAY
     Route: 065
     Dates: start: 2016

REACTIONS (3)
  - Somnambulism [Recovered/Resolved]
  - Product dose omission issue [Unknown]
  - Product use in unapproved indication [Unknown]
